FAERS Safety Report 25088705 (Version 4)
Quarter: 2025Q3

REPORT INFORMATION
  Report Type: Spontaneous
  Country: GB (occurrence: GB)
  Receive Date: 20250318
  Receipt Date: 20250723
  Transmission Date: 20251020
  Serious: Yes (Other)
  Sender: MERZ
  Company Number: US-MRZWEB-2025030000098

PATIENT

DRUGS (3)
  1. BOCOUTURE [Suspect]
     Active Substance: BOTULINUM TOXIN TYPE A
     Indication: Skin cosmetic procedure
     Dosage: 36 INTERNATIONAL UNIT
     Dates: start: 20240710, end: 20240710
  2. BOCOUTURE [Suspect]
     Active Substance: BOTULINUM TOXIN TYPE A
     Indication: Skin wrinkling
  3. BOTULINUM TOXIN NOS [Concomitant]
     Active Substance: BOTULINUM TOXIN NOS
     Indication: Skin wrinkling
     Dates: start: 2020, end: 2020

REACTIONS (26)
  - Botulism [Not Recovered/Not Resolved]
  - Malaise [Not Recovered/Not Resolved]
  - Tongue coated [Not Recovered/Not Resolved]
  - Eye irritation [Not Recovered/Not Resolved]
  - Ear congestion [Not Recovered/Not Resolved]
  - Food intolerance [Not Recovered/Not Resolved]
  - Head discomfort [Not Recovered/Not Resolved]
  - Anxiety [Not Recovered/Not Resolved]
  - Dyspepsia [Not Recovered/Not Resolved]
  - Amnesia [Not Recovered/Not Resolved]
  - Photophobia [Not Recovered/Not Resolved]
  - Hyperacusis [Not Recovered/Not Resolved]
  - Arthritis [Not Recovered/Not Resolved]
  - Ear discomfort [Not Recovered/Not Resolved]
  - Ear pain [Not Recovered/Not Resolved]
  - Bone pain [Not Recovered/Not Resolved]
  - Weight decreased [Not Recovered/Not Resolved]
  - Tinnitus [Not Recovered/Not Resolved]
  - Alopecia [Not Recovered/Not Resolved]
  - Parosmia [Unknown]
  - Hot flush [Unknown]
  - Myalgia [Not Recovered/Not Resolved]
  - Hypoaesthesia [Not Recovered/Not Resolved]
  - Dry eye [Not Recovered/Not Resolved]
  - Headache [Unknown]
  - Product preparation issue [Unknown]

NARRATIVE: CASE EVENT DATE: 20240101
